FAERS Safety Report 6318797-2 (Version None)
Quarter: 2009Q3

REPORT INFORMATION
  Report Type: 
  Country: None (occurrence: None)
  Receive Date: 20090821
  Receipt Date: 20090810
  Transmission Date: 20100115
  Serious: Yes (Hospitalization)
  Sender: FDA-Public Use
  Company Number: JP-WATSON-2009-06420

PATIENT
  Age: 37 Year
  Sex: Male

DRUGS (4)
  1. VECURONIUM BROMIDE (WATSON LABORATORIES) [Suspect]
     Indication: GENERAL ANAESTHESIA
     Dosage: UNK
     Route: 065
     Dates: start: 20070401, end: 20070401
  2. PROPOFOL [Suspect]
     Indication: GENERAL ANAESTHESIA
     Dosage: UNK
     Route: 065
     Dates: start: 20070401, end: 20070401
  3. ROCURONIUM BROMIDE [Suspect]
     Indication: GENERAL ANAESTHESIA
     Dosage: UNK
     Route: 065
     Dates: start: 20070401, end: 20070401
  4. SEVOFLURANE [Suspect]
     Indication: GENERAL ANAESTHESIA
     Dosage: UNK
     Route: 065
     Dates: start: 20070401, end: 20070401

REACTIONS (1)
  - RHABDOMYOLYSIS [None]
